FAERS Safety Report 8530715 (Version 2)
Quarter: 2012Q4

REPORT INFORMATION
  Report Type: 
  Country: US (occurrence: US)
  Receive Date: 20120425
  Receipt Date: 20120913
  Transmission Date: 20130627
  Serious: Yes (Hospitalization)
  Sender: FDA-Public Use
  Company Number: US-GILEAD-2012-0053967

PATIENT
  Age: 55 Year
  Sex: Female

DRUGS (1)
  1. LETAIRIS [Suspect]
     Indication: PRODUCT USED FOR UNKNOWN INDICATION
     Dosage: 5 mg, UNK
     Route: 048
     Dates: start: 20100526, end: 20120801

REACTIONS (4)
  - Hip arthroplasty [Recovered/Resolved]
  - Hip arthroplasty [Recovered/Resolved]
  - Feeling abnormal [Unknown]
  - Fatigue [Unknown]
